FAERS Safety Report 14821927 (Version 2)
Quarter: 2018Q2

REPORT INFORMATION
  Report Type: Spontaneous
  Country: PL (occurrence: PL)
  Receive Date: 20180427
  Receipt Date: 20180518
  Transmission Date: 20180711
  Serious: Yes (Other)
  Sender: FDA-Public Use
  Company Number: PL-ASTRAZENECA-2018SE53625

PATIENT
  Age: 74 Year
  Sex: Female

DRUGS (8)
  1. GEMCITABINE [Concomitant]
     Active Substance: GEMCITABINE\GEMCITABINE HYDROCHLORIDE
  2. NADROPARIN [Concomitant]
     Active Substance: NADROPARIN
  3. PREDNISONE. [Concomitant]
     Active Substance: PREDNISONE
  4. OMEPRAZOLE. [Concomitant]
     Active Substance: OMEPRAZOLE
  5. TIMONACIC [Concomitant]
     Active Substance: TIMONACIC
  6. POTASSIUM CHLORIDE. [Concomitant]
     Active Substance: POTASSIUM CHLORIDE
  7. TAMOXIFEN [Suspect]
     Active Substance: TAMOXIFEN
     Indication: BREAST CANCER FEMALE
     Route: 048
  8. PEMETREXED. [Suspect]
     Active Substance: PEMETREXED
     Route: 065
     Dates: start: 201705

REACTIONS (2)
  - Malignant neoplasm progression [Unknown]
  - Subacute cutaneous lupus erythematosus [Unknown]
